FAERS Safety Report 8157480-8 (Version None)
Quarter: 2012Q1

REPORT INFORMATION
  Report Type: 
  Country: None (occurrence: None)
  Receive Date: 20120222
  Receipt Date: 20120220
  Transmission Date: 20120608
  Serious: Yes (Hospitalization)
  Sender: FDA-Public Use
  Company Number: IT-BRISTOL-MYERS SQUIBB COMPANY-16391260

PATIENT
  Age: 89 Year
  Sex: Female

DRUGS (5)
  1. CARVEDILOL [Concomitant]
     Indication: HYPERTENSION
     Route: 048
  2. LASIX [Concomitant]
     Indication: OEDEMA
     Dosage: TABS, 2 UNITS
     Route: 048
  3. AROMASIN [Concomitant]
     Indication: BREAST CANCER
     Dosage: TABS,1 UNIT
     Route: 048
  4. COUMADIN [Suspect]
     Indication: ATRIAL FIBRILLATION
     Dosage: INTERRUPTED:28DEC2011, 1UNIT.
     Dates: start: 20100101
  5. AMLODIPINE [Concomitant]
     Indication: HYPERTENSION
     Route: 048

REACTIONS (1)
  - ANAEMIA [None]
